FAERS Safety Report 24228623 (Version 2)
Quarter: 2025Q3

REPORT INFORMATION
  Report Type: Spontaneous
  Country: US (occurrence: US)
  Receive Date: 20240820
  Receipt Date: 20250819
  Transmission Date: 20251021
  Serious: No
  Sender: REGENERON
  Company Number: US-REGENERON PHARMACEUTICALS, INC.-2024-067949

PATIENT
  Sex: Female

DRUGS (2)
  1. PRALUENT [Suspect]
     Active Substance: ALIROCUMAB
     Indication: Hypercholesterolaemia
     Dosage: 75 MG, Q2W
     Route: 058
     Dates: start: 20240417
  2. PRALUENT [Suspect]
     Active Substance: ALIROCUMAB
     Indication: Cerebrovascular accident

REACTIONS (10)
  - Dysphemia [Unknown]
  - Heart rate increased [Unknown]
  - Skin pressure mark [Recovered/Resolved]
  - Unevaluable event [Unknown]
  - Fear [Unknown]
  - Panic reaction [Unknown]
  - Restlessness [Unknown]
  - Hypertension [Unknown]
  - Inappropriate schedule of product administration [Unknown]
  - Inappropriate schedule of product administration [Unknown]

NARRATIVE: CASE EVENT DATE: 20240101
